FAERS Safety Report 23904423 (Version 1)
Quarter: 2024Q2

REPORT INFORMATION
  Report Type: Spontaneous
  Country: GB (occurrence: GB)
  Receive Date: 20240527
  Receipt Date: 20240527
  Transmission Date: 20240715
  Serious: Yes (Hospitalization, Other)
  Sender: FDA-Public Use
  Company Number: GB-SAMSUNG BIOEPIS-SB-2024-15499

PATIENT
  Age: 13 Year
  Sex: Male

DRUGS (1)
  1. INFLIXIMAB [Suspect]
     Active Substance: INFLIXIMAB
     Indication: Inflammatory bowel disease
     Dosage: UNKNOWN
     Route: 065

REACTIONS (4)
  - Respiratory failure [Recovered/Resolved]
  - Interstitial lung disease [Unknown]
  - Pyrexia [Recovered/Resolved]
  - Colitis [Recovered/Resolved]
